FAERS Safety Report 8283015-5 (Version None)
Quarter: 2012Q1

REPORT INFORMATION
  Report Type: 
  Country: None (occurrence: None)
  Receive Date: 20120328
  Receipt Date: 20120319
  Transmission Date: 20120608
  Serious: Yes (Other)
  Sender: FDA-Public Use
  Company Number: 2012030935

PATIENT
  Age: 63 Year
  Sex: Female
  Weight: 72.5755 kg

DRUGS (16)
  1. BUSPIRONE HCL [Concomitant]
  2. FENOFIBRATE [Concomitant]
  3. FEXOFENADINE HCL [Concomitant]
  4. DOCUSATE SODIUM (DOCUSATE SODIUM) [Concomitant]
  5. FERROUS GLUCONATE (FERROUS GLUCONATE) [Concomitant]
  6. HIZENTRA [Suspect]
     Indication: IMMUNODEFICIENCY COMMON VARIABLE
     Dosage: SEE IMAGE
     Route: 058
     Dates: start: 20120314
  7. HIZENTRA [Suspect]
     Indication: IMMUNODEFICIENCY COMMON VARIABLE
     Dosage: SEE IMAGE
     Route: 058
     Dates: start: 20120126
  8. HIZENTRA [Suspect]
  9. FLUTICASONE PROPIONATE [Concomitant]
  10. GLUCOSAMINE (GLUCOSAMINE) [Concomitant]
  11. ACETAMINOPHEN [Concomitant]
  12. HIZENTRA [Suspect]
  13. HIZENTRA [Suspect]
  14. HIZENTRA [Suspect]
  15. HIZENTRA [Suspect]
  16. LEVOTHYROXINE SODIUM [Concomitant]

REACTIONS (6)
  - INFUSION SITE PAIN [None]
  - INFUSION SITE ERYTHEMA [None]
  - PNEUMONIA [None]
  - INFUSION SITE SWELLING [None]
  - INJECTION SITE PRURITUS [None]
  - HEADACHE [None]
